FAERS Safety Report 4393444-8 (Version None)
Quarter: 2004Q3

REPORT INFORMATION
  Report Type: 
  Country: None (occurrence: None)
  Receive Date: 20040701
  Receipt Date: 20040617
  Transmission Date: 20050211
  Serious: Yes (Other)
  Sender: FDA-Public Use
  Company Number: 2004220143FR

PATIENT
  Age: 51 Year
  Sex: Female

DRUGS (1)
  1. SOLU-MEDROL [Suspect]
     Indication: UVEITIS
     Dosage: IV
     Route: 042

REACTIONS (4)
  - HERPES SIMPLEX [None]
  - NECROSIS [None]
  - RETINAL INFARCTION [None]
  - RETINAL VASCULITIS [None]
